FAERS Safety Report 25952138 (Version 1)
Quarter: 2025Q4

REPORT INFORMATION
  Report Type: Spontaneous
  Country: US (occurrence: None)
  Receive Date: 20251023
  Receipt Date: 20251023
  Transmission Date: 20260118
  Serious: Yes (Hospitalization)
  Sender: FDA-CTU
  Company Number: None

PATIENT
  Age: 57 Year
  Sex: Male
  Weight: 84.8 kg

DRUGS (5)
  1. FLUOROURACIL [Suspect]
     Active Substance: FLUOROURACIL
     Dates: end: 20251014
  2. CAMPTOSAR [Suspect]
     Active Substance: IRINOTECAN HYDROCHLORIDE
     Dates: end: 20251014
  3. LEUCOVORIN CALCIUM [Suspect]
     Active Substance: LEUCOVORIN CALCIUM
     Dates: end: 20251014
  4. NIVOLUMAB [Suspect]
     Active Substance: NIVOLUMAB
     Dates: start: 20251014
  5. OXALIPLATIN [Suspect]
     Active Substance: OXALIPLATIN

REACTIONS (10)
  - Ureteric obstruction [None]
  - Abdominal pain [None]
  - Back pain [None]
  - Vomiting [None]
  - Hypophagia [None]
  - Fluid intake reduced [None]
  - Constipation [None]
  - Intestinal obstruction [None]
  - Disease progression [None]
  - Gastrooesophageal cancer [None]

NARRATIVE: CASE EVENT DATE: 20251019
